FAERS Safety Report 24109361 (Version 1)
Quarter: 2024Q3

REPORT INFORMATION
  Report Type: Spontaneous
  Country: IE (occurrence: IE)
  Receive Date: 20240718
  Receipt Date: 20240718
  Transmission Date: 20241016
  Serious: Yes (Hospitalization, Other)
  Sender: NOVITIUM PHARMA
  Company Number: IE-NOVITIUMPHARMA-2024IENVP01302

PATIENT
  Sex: Male

DRUGS (10)
  1. LACOSAMIDE [Suspect]
     Active Substance: LACOSAMIDE
     Indication: Sleep related hypermotor epilepsy
  2. CARBAMAZEPINE [Suspect]
     Active Substance: CARBAMAZEPINE
     Indication: Sleep related hypermotor epilepsy
  3. OXCARBAZEPINE [Concomitant]
     Active Substance: OXCARBAZEPINE
     Indication: Sleep related hypermotor epilepsy
  4. ESLICARBAZEPINE ACETATE [Concomitant]
     Active Substance: ESLICARBAZEPINE ACETATE
     Indication: Sleep related hypermotor epilepsy
  5. LAMOTRIGINE [Concomitant]
     Active Substance: LAMOTRIGINE
     Indication: Sleep related hypermotor epilepsy
  6. CLOBAZAM [Concomitant]
     Active Substance: CLOBAZAM
     Indication: Sleep related hypermotor epilepsy
  7. VALPROATE SODIUM [Concomitant]
     Active Substance: VALPROATE SODIUM
     Indication: Sleep related hypermotor epilepsy
  8. LEVETIRACETAM [Concomitant]
     Active Substance: LEVETIRACETAM
     Indication: Sleep related hypermotor epilepsy
  9. BRIVARACETAM [Concomitant]
     Active Substance: BRIVARACETAM
     Indication: Sleep related hypermotor epilepsy
  10. PERAMPANEL [Concomitant]
     Active Substance: PERAMPANEL
     Indication: Sleep related hypermotor epilepsy

REACTIONS (2)
  - Inappropriate antidiuretic hormone secretion [Unknown]
  - Drug ineffective [Unknown]
